FAERS Safety Report 17980651 (Version 3)
Quarter: 2022Q1

REPORT INFORMATION
  Report Type: Other
  Country: CN (occurrence: None)
  Receive Date: 20200704
  Receipt Date: 20220124
  Transmission Date: 20220423
  Serious: Yes (Hospitalization)
  Sender: FDA-Public Use
  Company Number: CN-ROCHE-2218049

PATIENT
  Age: 55 Year
  Sex: Female
  Weight: 53 kg

DRUGS (2)
  1. AVASTIN [Suspect]
     Active Substance: BEVACIZUMAB
     Indication: Non-small cell lung cancer
     Route: 041
     Dates: start: 20170331, end: 20200512
  2. AVASTIN [Suspect]
     Active Substance: BEVACIZUMAB
     Route: 041

REACTIONS (6)
  - Patella fracture [Recovering/Resolving]
  - Ligament rupture [Recovering/Resolving]
  - Tendon injury [Unknown]
  - Gait inability [Unknown]
  - Nasopharyngitis [Unknown]
  - Lower limb fracture [Unknown]

NARRATIVE: CASE EVENT DATE: 20200501
